FAERS Safety Report 23644313 (Version 7)
Quarter: 2025Q1

REPORT INFORMATION
  Report Type: Spontaneous
  Country: US (occurrence: US)
  Receive Date: 20240318
  Receipt Date: 20250310
  Transmission Date: 20250408
  Serious: Yes (Hospitalization, Other)
  Sender: SANOFI AVENTIS
  Company Number: US-SA-SAC20240313000442

PATIENT
  Age: 82 Year
  Sex: Female
  Weight: 95.25 kg

DRUGS (39)
  1. DUPIXENT [Suspect]
     Active Substance: DUPILUMAB
     Indication: Asthma
     Dosage: 300 MG, QOW
     Route: 058
  2. DUPIXENT [Suspect]
     Active Substance: DUPILUMAB
     Indication: Eosinophilic oesophagitis
  3. DIGOXIN [Concomitant]
     Active Substance: DIGOXIN
  4. MONTELUKAST SODIUM [Concomitant]
     Active Substance: MONTELUKAST SODIUM
  5. FLORASTOR [SACCHAROMYCES BOULARDII] [Concomitant]
  6. FLUTICASONE PROPIONATE [Concomitant]
     Active Substance: FLUTICASONE PROPIONATE
  7. PANTOPRAZOLE SODIUM [Concomitant]
     Active Substance: PANTOPRAZOLE SODIUM
  8. TYLENOL [Concomitant]
     Active Substance: ACETAMINOPHEN
  9. CICLOPIROX [Concomitant]
     Active Substance: CICLOPIROX
  10. ALPRAZOLAM [Concomitant]
     Active Substance: ALPRAZOLAM
  11. POTASSIUM CHLORIDE [Concomitant]
     Active Substance: POTASSIUM CHLORIDE
  12. TRELEGY ELLIPTA [Concomitant]
     Active Substance: FLUTICASONE FUROATE\UMECLIDINIUM BROMIDE\VILANTEROL TRIFENATATE
  13. QUETIAPINE FUMARATE [Concomitant]
     Active Substance: QUETIAPINE FUMARATE
  14. FERROUS SULFATE [Concomitant]
     Active Substance: FERROUS SULFATE
  15. CARAFATE [Concomitant]
     Active Substance: SUCRALFATE
  16. XARELTO [Concomitant]
     Active Substance: RIVAROXABAN
  17. LASIX [Concomitant]
     Active Substance: FUROSEMIDE
  18. VITAMIN B1 [Concomitant]
     Active Substance: THIAMINE HYDROCHLORIDE
  19. IPRATROPIUM BROMIDE [Concomitant]
     Active Substance: IPRATROPIUM BROMIDE
  20. ALBUTEROL SULFATE [Concomitant]
     Active Substance: ALBUTEROL SULFATE
  21. ALUMINUM HYDROXIDE\MAGNESIUM CARBONATE [Concomitant]
     Active Substance: ALUMINUM HYDROXIDE\MAGNESIUM CARBONATE
  22. METOPROLOL SUCCINATE [Concomitant]
     Active Substance: METOPROLOL SUCCINATE
  23. MUCINEX [Concomitant]
     Active Substance: GUAIFENESIN
  24. CALCIUM\CHOLECALCIFEROL [Concomitant]
     Active Substance: CALCIUM\CHOLECALCIFEROL
  25. AZELASTINE HYDROCHLORIDE [Concomitant]
     Active Substance: AZELASTINE HYDROCHLORIDE
  26. NYSTATIN [Concomitant]
     Active Substance: NYSTATIN
  27. METHOCARBAMOL [Concomitant]
     Active Substance: METHOCARBAMOL
  28. HYDROCHLOROTHIAZIDE [Concomitant]
     Active Substance: HYDROCHLOROTHIAZIDE
  29. PROAIR HFA [Concomitant]
     Active Substance: ALBUTEROL SULFATE
  30. GABAPENTIN [Concomitant]
     Active Substance: GABAPENTIN
  31. METOPROLOL TARTRATE [Concomitant]
     Active Substance: METOPROLOL TARTRATE
  32. TOLTERODINE TARTRATE [Concomitant]
     Active Substance: TOLTERODINE TARTRATE
  33. DILTIAZEM [Concomitant]
     Active Substance: DILTIAZEM
  34. SUCRALFATE [Concomitant]
     Active Substance: SUCRALFATE
  35. VITAMIN C [Concomitant]
     Active Substance: ASCORBIC ACID
  36. ZYRTEC [Concomitant]
     Active Substance: CETIRIZINE HYDROCHLORIDE
  37. VITAMINS [Concomitant]
     Active Substance: VITAMINS
     Dosage: QD
  38. CALCIUM\CHOLECALCIFEROL [Concomitant]
     Active Substance: CALCIUM\CHOLECALCIFEROL
  39. PEPCID AC [Concomitant]
     Active Substance: FAMOTIDINE

REACTIONS (12)
  - Pneumococcal sepsis [Recovering/Resolving]
  - Muscle spasms [Not Recovered/Not Resolved]
  - Bursitis [Not Recovered/Not Resolved]
  - Gastrointestinal disorder [Not Recovered/Not Resolved]
  - Musculoskeletal discomfort [Not Recovered/Not Resolved]
  - Hordeolum [Recovered/Resolved]
  - Pain in extremity [Not Recovered/Not Resolved]
  - Headache [Not Recovered/Not Resolved]
  - Diarrhoea [Not Recovered/Not Resolved]
  - Erythema of eyelid [Recovering/Resolving]
  - Arthralgia [Recovering/Resolving]
  - Inappropriate schedule of product administration [Unknown]

NARRATIVE: CASE EVENT DATE: 20230101
